FAERS Safety Report 6556892-3 (Version None)
Quarter: 2010Q1

REPORT INFORMATION
  Report Type: 
  Country: None (occurrence: None)
  Receive Date: 20100126
  Receipt Date: 20100112
  Transmission Date: 20100710
  Serious: Yes (Other)
  Sender: FDA-Public Use
  Company Number: 003382

PATIENT
  Sex: Female

DRUGS (5)
  1. KEPPRA [Suspect]
     Indication: MYOCLONIC EPILEPSY
     Dosage: 1500 MG ORAL
     Route: 048
     Dates: start: 20070311, end: 20070413
  2. ZONEGRAN [Concomitant]
  3. DEPAKIN [Concomitant]
  4. RIVOTRIL [Concomitant]
  5. NOOTROPIL [Concomitant]

REACTIONS (1)
  - DEPERSONALISATION [None]
